FAERS Safety Report 6534544-3 (Version None)
Quarter: 2009Q4

REPORT INFORMATION
  Report Type: 
  Country: None (occurrence: None)
  Receive Date: 20091228
  Receipt Date: 20081101
  Transmission Date: 20100525
  Serious: Yes (Life-Threatening)
  Sender: FDA-Public Use
  Company Number: US-002075

PATIENT
  Age: 58 Year
  Sex: Female
  Weight: 77 kg

DRUGS (5)
  1. MULTIHANCE [Suspect]
     Indication: NUCLEAR MAGNETIC RESONANCE IMAGING
     Dosage: 10ML QD INTRAVENOUS (NOT OTHERWISE SPECIFIED), 20ML QD INTRAVENOUS (NOT OTHERWISE SPECIFIED)
     Route: 042
     Dates: start: 20081101, end: 20081101
  2. MULTIHANCE [Suspect]
     Indication: SENSORY DISTURBANCE
     Dosage: 10ML QD INTRAVENOUS (NOT OTHERWISE SPECIFIED), 20ML QD INTRAVENOUS (NOT OTHERWISE SPECIFIED)
     Route: 042
     Dates: start: 20081101, end: 20081101
  3. MULTIHANCE [Suspect]
     Indication: NUCLEAR MAGNETIC RESONANCE IMAGING
     Dosage: 10ML QD INTRAVENOUS (NOT OTHERWISE SPECIFIED), 20ML QD INTRAVENOUS (NOT OTHERWISE SPECIFIED)
     Route: 042
     Dates: start: 20081101, end: 20081101
  4. MULTIHANCE [Suspect]
     Indication: SENSORY DISTURBANCE
     Dosage: 10ML QD INTRAVENOUS (NOT OTHERWISE SPECIFIED), 20ML QD INTRAVENOUS (NOT OTHERWISE SPECIFIED)
     Route: 042
     Dates: start: 20081101, end: 20081101
  5. MULTIHANCE [Suspect]

REACTIONS (1)
  - ANAPHYLACTIC REACTION [None]
